FAERS Safety Report 5072573-X (Version None)
Quarter: 2006Q3

REPORT INFORMATION
  Report Type: 
  Country: None (occurrence: None)
  Receive Date: 20060801
  Receipt Date: 20060718
  Transmission Date: 20061208
  Serious: Yes (Hospitalization)
  Sender: FDA-Public Use
  Company Number: ALK_0006_2006

PATIENT
  Age: 51 Year
  Sex: Female

DRUGS (9)
  1. VIVITROL [Suspect]
     Indication: ALCOHOLISM
     Dosage: 380 MG EVERY4WKS IM
     Route: 030
     Dates: start: 20060626
  2. PAXIL [Concomitant]
  3. SINGULAIR [Concomitant]
  4. ZYRTEC [Concomitant]
  5. PRINIVIL [Concomitant]
  6. RHINOCORT [Concomitant]
  7. ASACOL [Concomitant]
  8. VALIUM [Concomitant]
  9. FOLATE [Concomitant]

REACTIONS (8)
  - ALCOHOL POISONING [None]
  - DIZZINESS [None]
  - DRUG INEFFECTIVE [None]
  - FATIGUE [None]
  - INJECTION SITE MASS [None]
  - PAIN [None]
  - POISONING [None]
  - SOMNOLENCE [None]
